FAERS Safety Report 4765952-9 (Version None)
Quarter: 2005Q3

REPORT INFORMATION
  Report Type: 
  Country: None (occurrence: None)
  Receive Date: 20050907
  Receipt Date: 20050825
  Transmission Date: 20060218
  Serious: Yes (Death)
  Sender: FDA-Public Use
  Company Number: 2005120365

PATIENT
  Age: 78 Year
  Sex: Female
  Weight: 55 kg

DRUGS (12)
  1. GENOTROPIN [Suspect]
     Indication: HYPOPITUITARISM
     Dosage: 0.1 MG (0.1 MG, EVERY DAY), SUBCUTANEOUS
     Route: 058
     Dates: start: 20000314
  2. LEVOTHYROXINE SODIUM [Concomitant]
  3. HYDROCORTISONE [Concomitant]
  4. HUMAN GROWTH HORMONE, RECOMBINANT (SOMATROPIN) [Concomitant]
  5. FOSAMAX [Concomitant]
  6. METOPROLOL TARTRATE [Concomitant]
  7. POTASSIUM CHLORIDE [Concomitant]
  8. SODIUM CHLORIDE 0.9% [Concomitant]
  9. DESMOPRESSIN ACETATE [Concomitant]
  10. CALCIUM (CALCIUM) [Concomitant]
  11. VITAMIN D [Concomitant]
  12. LOSEC (OMEPRAZOLE) [Concomitant]

REACTIONS (1)
  - DEATH [None]
